FAERS Safety Report 7251936-8 (Version None)
Quarter: 2011Q1

REPORT INFORMATION
  Report Type: 
  Country: None (occurrence: None)
  Receive Date: 20110128
  Receipt Date: 20100302
  Transmission Date: 20110831
  Serious: Yes (Other)
  Sender: FDA-Public Use
  Company Number: US-ABBOTT-09P-163-0613597-00

PATIENT
  Sex: Male

DRUGS (4)
  1. HUMIRA [Suspect]
     Indication: PSORIATIC ARTHROPATHY
     Route: 058
     Dates: start: 20080519
  2. PRILOSEC [Concomitant]
     Indication: GASTROOESOPHAGEAL REFLUX DISEASE
  3. PRINZIDE [Concomitant]
     Indication: PRODUCT USED FOR UNKNOWN INDICATION
  4. LIPITOR [Concomitant]
     Indication: BLOOD CHOLESTEROL INCREASED

REACTIONS (1)
  - PROSTATE CANCER [None]
